FAERS Safety Report 17870567 (Version 1)
Quarter: 2020Q2

REPORT INFORMATION
  Report Type: Spontaneous
  Country: US (occurrence: US)
  Receive Date: 20200605
  Receipt Date: 20200605
  Transmission Date: 20200714
  Serious: No
  Sender: FDA-Public Use
  Company Number: None

PATIENT
  Age: 84 Year
  Sex: Male

DRUGS (1)
  1. ERLEADA [Suspect]
     Active Substance: APALUTAMIDE
     Indication: PROSTATE CANCER
     Route: 048
     Dates: start: 20200311, end: 20200519

REACTIONS (6)
  - Dysarthria [None]
  - Blood glucose increased [None]
  - Therapy cessation [None]
  - Pain in extremity [None]
  - Parosmia [None]
  - Hypoaesthesia [None]

NARRATIVE: CASE EVENT DATE: 20200516
